FAERS Safety Report 6343975-6 (Version None)
Quarter: 2009Q3

REPORT INFORMATION
  Report Type: 
  Country: None (occurrence: None)
  Receive Date: 20090908
  Receipt Date: 20090826
  Transmission Date: 20100115
  Serious: Yes (Death, Hospitalization, Other)
  Sender: FDA-Public Use
  Company Number: FR-CELGENEUS-056-20484-09062016

PATIENT
  Sex: Female
  Weight: 49 kg

DRUGS (2)
  1. INNOHEP [Suspect]
     Indication: PULMONARY EMBOLISM
     Route: 058
     Dates: start: 20090607, end: 20090612
  2. INNOHEP [Suspect]
     Indication: OFF LABEL USE

REACTIONS (2)
  - COAGULATION TIME SHORTENED [None]
  - DEATH [None]
